FAERS Safety Report 6040266-8 (Version None)
Quarter: 2009Q1

REPORT INFORMATION
  Report Type: 
  Country: None (occurrence: None)
  Receive Date: 20090116
  Receipt Date: 20080213
  Transmission Date: 20090719
  Serious: Yes (Life-Threatening)
  Sender: FDA-Public Use
  Company Number: US-BRISTOL-MYERS SQUIBB COMPANY-14064307

PATIENT
  Age: 96 Year
  Sex: Female

DRUGS (11)
  1. ABILIFY [Suspect]
     Indication: PARANOIA
     Dosage: THERAPY DATES: 25-JAN-2008 TO 28-JAN-2008 RESUMED ON 11-FEB-2008
     Route: 048
     Dates: start: 20080125
  2. ACTONEL [Suspect]
     Dates: end: 20080204
  3. VITAMIN B-12 [Concomitant]
  4. FUROSEMIDE [Concomitant]
  5. SYNTHROID [Concomitant]
  6. GLIPIZIDE [Concomitant]
  7. CALCIUM + VITAMIN D [Concomitant]
  8. SENNA [Concomitant]
  9. APAP TAB [Concomitant]
  10. DUONEB [Concomitant]
  11. ALBUTEROL [Concomitant]

REACTIONS (1)
  - GASTROINTESTINAL HAEMORRHAGE [None]
